FAERS Safety Report 6974382-0 (Version None)
Quarter: 2010Q3

REPORT INFORMATION
  Report Type: 
  Country: None (occurrence: None)
  Receive Date: 20100909
  Receipt Date: 20080512
  Transmission Date: 20110219
  Serious: Yes (Other)
  Sender: FDA-Public Use
  Company Number: US-WYE-H04065608

PATIENT
  Age: 31 Year
  Sex: Female

DRUGS (6)
  1. PROTONIX [Suspect]
     Indication: GASTROOESOPHAGEAL REFLUX DISEASE
     Dosage: UNKNOWN
     Dates: end: 20070901
  2. HYDROCHLOROTHIAZIDE [Concomitant]
     Dosage: UNKNOWN
  3. LABETALOL HCL [Concomitant]
     Dosage: UNKNOWN
  4. LEXAPRO [Suspect]
     Indication: DEPRESSION
     Route: 048
     Dates: start: 20070801, end: 20070901
  5. LEXAPRO [Suspect]
     Indication: ANXIETY
  6. CLONAZEPAM [Suspect]
     Indication: ANXIETY
     Dosage: 0.5 MG PRN
     Dates: end: 20070901

REACTIONS (1)
  - HEPATITIS [None]
